FAERS Safety Report 7900434-4 (Version None)
Quarter: 2011Q4

REPORT INFORMATION
  Report Type: 
  Country: None (occurrence: None)
  Receive Date: 20111108
  Receipt Date: 20110917
  Transmission Date: 20120403
  Serious: Yes (Other)
  Sender: FDA-Public Use
  Company Number: PHHY2011ES83517

PATIENT
  Age: 28 Year
  Sex: Male

DRUGS (3)
  1. CYCLOSPORINE [Suspect]
     Indication: RETINAL VASCULITIS
     Dosage: 150 MG, EVERY DAY
  2. METHOTREXATE [Concomitant]
     Dosage: 15 MG EVERY WEEK FOR 5 YEARS
  3. ADALIMUMAB [Concomitant]
     Dosage: 40 MG EVERY 2 WEEKS

REACTIONS (2)
  - MACULAR OEDEMA [None]
  - RETINAL VASCULITIS [None]
